FAERS Safety Report 6888351-2 (Version None)
Quarter: 2010Q3

REPORT INFORMATION
  Report Type: 
  Country: None (occurrence: None)
  Receive Date: 20100730
  Receipt Date: 20100719
  Transmission Date: 20110219
  Serious: Yes (Hospitalization)
  Sender: FDA-Public Use
  Company Number: GB-BAUSCH-2010BL003932

PATIENT
  Age: 50 Year
  Sex: Male

DRUGS (12)
  1. PREDNISOLONE [Suspect]
     Indication: PLASMABLASTIC LYMPHOMA
  2. DOXORUBICIN HCL [Suspect]
     Indication: PLASMABLASTIC LYMPHOMA
  3. VINCRISTINE [Suspect]
     Indication: PLASMABLASTIC LYMPHOMA
  4. CYCLOPHOSPHAMIDE [Suspect]
     Indication: PLASMABLASTIC LYMPHOMA
  5. ACYCLOVIR [Concomitant]
     Indication: HIV TEST POSITIVE
  6. AZITHROMYCIN [Concomitant]
     Indication: INFECTION PROPHYLAXIS
  7. COTRIM [Concomitant]
     Indication: INFECTION PROPHYLAXIS
  8. DARUNAVIR [Concomitant]
     Indication: PRODUCT USED FOR UNKNOWN INDICATION
  9. EMTRICITABINE [Concomitant]
     Indication: HIV TEST POSITIVE
  10. FLUCONAZOLE [Concomitant]
     Indication: INFECTION PROPHYLAXIS
  11. TENOFOVIR [Concomitant]
     Indication: HIV TEST POSITIVE
  12. RITONAVIR [Concomitant]
     Indication: HIV TEST POSITIVE

REACTIONS (14)
  - AREFLEXIA [None]
  - ATAXIA [None]
  - BALANCE DISORDER [None]
  - COUGH [None]
  - CYTOMEGALOVIRUS CHORIORETINITIS [None]
  - DIARRHOEA [None]
  - DYSPNOEA EXERTIONAL [None]
  - ESCHAR [None]
  - FEBRILE NEUTROPENIA [None]
  - HYPOTONIA [None]
  - MYCOBACTERIUM AVIUM COMPLEX INFECTION [None]
  - NEUTROPENIC SEPSIS [None]
  - PYREXIA [None]
  - RADICULOPATHY [None]
